FAERS Safety Report 4615972-X (Version None)
Quarter: 2005Q1

REPORT INFORMATION
  Report Type: 
  Country: None (occurrence: None)
  Receive Date: 20050318
  Receipt Date: 20050308
  Transmission Date: 20050727
  Serious: Yes (Other)
  Sender: FDA-Public Use
  Company Number: 2005022338

PATIENT
  Sex: Female

DRUGS (1)
  1. BEXTRA [Suspect]
     Indication: MENISCUS OPERATION
     Dosage: 40 M G, ORAL
     Route: 048
     Dates: start: 20041221, end: 20041223

REACTIONS (3)
  - DERMATITIS BULLOUS [None]
  - DRUG HYPERSENSITIVITY [None]
  - PRURITUS [None]
